FAERS Safety Report 20341019 (Version 1)
Quarter: 2022Q1

REPORT INFORMATION
  Report Type: Other
  Country: RU (occurrence: RU)
  Receive Date: 20220117
  Receipt Date: 20220117
  Transmission Date: 20220423
  Serious: Yes (Other)
  Sender: FDA-Public Use
  Company Number: None

PATIENT

DRUGS (1)
  1. ONCASPAR [Suspect]
     Active Substance: PEGASPARGASE
     Indication: B-cell type acute leukaemia
     Dosage: 1000 IU, SINGLE
     Route: 041
     Dates: start: 20211228, end: 20211228

REACTIONS (1)
  - Hyperaemia [Recovering/Resolving]

NARRATIVE: CASE EVENT DATE: 20211228
